FAERS Safety Report 25187946 (Version 2)
Quarter: 2025Q2

REPORT INFORMATION
  Report Type: Report from Study
  Country: US (occurrence: US)
  Receive Date: 20250411
  Receipt Date: 20250425
  Transmission Date: 20250717
  Serious: Yes (Other)
  Sender: ABBVIE
  Company Number: US-ABBVIE-6212783

PATIENT
  Age: 71 Year
  Sex: Male
  Weight: 108.86 kg

DRUGS (1)
  1. SKYRIZI [Suspect]
     Active Substance: RISANKIZUMAB-RZAA
     Indication: Psoriasis
     Route: 058
     Dates: start: 202211

REACTIONS (3)
  - Coronary artery occlusion [Recovering/Resolving]
  - Glaucoma [Not Recovered/Not Resolved]
  - Heart rate abnormal [Not Recovered/Not Resolved]

NARRATIVE: CASE EVENT DATE: 20250301
